FAERS Safety Report 4271000-X (Version None)
Quarter: 2004Q1

REPORT INFORMATION
  Report Type: 
  Country: None (occurrence: None)
  Receive Date: 20040114
  Receipt Date: 20040109
  Transmission Date: 20041129
  Serious: Yes (Hospitalization)
  Sender: FDA-Public Use
  Company Number: WAES 0401USA00679

PATIENT
  Age: 65 Year
  Sex: Male

DRUGS (1)
  1. STROMECTOL [Suspect]
     Route: 048
     Dates: start: 20030627, end: 20030627

REACTIONS (4)
  - ASTHENIA [None]
  - CHILLS [None]
  - CONJUNCTIVAL HYPERAEMIA [None]
  - SWELLING FACE [None]
